FAERS Safety Report 14995503 (Version 1)
Quarter: 2018Q2

REPORT INFORMATION
  Report Type: Report from Study
  Country: GB (occurrence: GB)
  Receive Date: 20180611
  Receipt Date: 20180611
  Transmission Date: 20180711
  Serious: Yes (Hospitalization, Other)
  Sender: FDA-Public Use
  Company Number: GB-TEVA-2018-GB-904773

PATIENT
  Age: 75 Year
  Sex: Male
  Weight: 90 kg

DRUGS (9)
  1. TAMSULOSIN HYDROCHLORIDE. [Concomitant]
     Active Substance: TAMSULOSIN HYDROCHLORIDE
     Route: 065
     Dates: start: 20120802, end: 20121115
  2. OMEPRAZOLE. [Concomitant]
     Active Substance: OMEPRAZOLE
     Route: 065
     Dates: start: 20120802, end: 20121113
  3. ADCAL [Concomitant]
     Active Substance: CALCIUM CARBONATE
     Route: 065
     Dates: start: 20120802, end: 20121113
  4. LACTULOSE. [Concomitant]
     Active Substance: LACTULOSE
     Route: 065
     Dates: start: 20120815, end: 20120831
  5. INFLUENZA VIRUS [Interacting]
     Active Substance: INFLUENZA VIRUS VACCINE
     Indication: INFLUENZA IMMUNISATION
     Route: 065
     Dates: start: 20121027, end: 20121027
  6. WARFARIN [Suspect]
     Active Substance: WARFARIN
     Dosage: UNK
     Route: 065
     Dates: start: 20120802, end: 20121113
  7. MICONAZOLE. [Concomitant]
     Active Substance: MICONAZOLE
     Route: 065
     Dates: start: 20120815, end: 20120912
  8. BISOPROLOL [Concomitant]
     Active Substance: BISOPROLOL
     Route: 065
     Dates: start: 20120802, end: 20121113
  9. PREDNISOLONE. [Concomitant]
     Active Substance: PREDNISOLONE
     Route: 065
     Dates: start: 20120802, end: 20121113

REACTIONS (5)
  - Urinary tract infection [Unknown]
  - Muscular weakness [Recovering/Resolving]
  - Drug interaction [Unknown]
  - Platelet count decreased [Unknown]
  - Haematuria [Unknown]

NARRATIVE: CASE EVENT DATE: 20121027
